FAERS Safety Report 9207518 (Version 1)
Quarter: 2013Q2

REPORT INFORMATION
  Report Type: Report from Study
  Country: CA (occurrence: CA)
  Receive Date: 20130403
  Receipt Date: 20130403
  Transmission Date: 20140414
  Serious: Yes (Other)
  Sender: FDA-Public Use
  Company Number: CA-ROCHE-1209104

PATIENT
  Sex: Male
  Weight: 81 kg

DRUGS (5)
  1. AVASTIN [Suspect]
     Indication: GLIOBLASTOMA
     Route: 042
     Dates: start: 20130322, end: 20130322
  2. DEXAMETHASONE [Concomitant]
     Route: 065
  3. KEPPRA [Concomitant]
     Route: 065
  4. RANITIDINE [Concomitant]
     Route: 065
  5. FRAGMIN [Concomitant]
     Route: 065

REACTIONS (2)
  - General physical health deterioration [Unknown]
  - Drug ineffective [Unknown]
